FAERS Safety Report 9451064 (Version 1)
Quarter: 2013Q3

REPORT INFORMATION
  Report Type: Spontaneous
  Country: US (occurrence: None)
  Receive Date: 20130807
  Receipt Date: 20130807
  Transmission Date: 20140515
  Serious: Yes (Other)
  Sender: FDA-Public Use
  Company Number: US-ZYDUS-001872

PATIENT
  Age: 59 Year
  Sex: Male

DRUGS (3)
  1. OMEPRAZOLE (OMEPRAZOLE) [Suspect]
     Dates: start: 200604
  2. ATORVASTATIN (ATORVASTATIN) [Suspect]
     Dates: start: 200604
  3. GEMFIBROZIL [Suspect]

REACTIONS (3)
  - Polymyositis [None]
  - Drug interaction [None]
  - Muscle necrosis [None]
